FAERS Safety Report 5440444-2 (Version None)
Quarter: 2007Q3

REPORT INFORMATION
  Report Type: 
  Country: None (occurrence: None)
  Receive Date: 20070831
  Receipt Date: 20070830
  Transmission Date: 20080115
  Serious: Yes (Life-Threatening, Hospitalization)
  Sender: FDA-Public Use
  Company Number: GB-BRISTOL-MYERS SQUIBB COMPANY-13846480

PATIENT
  Age: 72 Year
  Sex: Male
  Weight: 100 kg

DRUGS (2)
  1. SPRYCEL [Suspect]
     Indication: CHRONIC MYELOID LEUKAEMIA
     Route: 048
     Dates: start: 20070606, end: 20070710
  2. GLEEVEC [Concomitant]
     Indication: CHRONIC MYELOID LEUKAEMIA
     Route: 048
     Dates: start: 20041103, end: 20070606

REACTIONS (3)
  - LOWER RESPIRATORY TRACT INFECTION [None]
  - PLEURAL EFFUSION [None]
  - PYREXIA [None]
